FAERS Safety Report 10655558 (Version 1)
Quarter: 2014Q4

REPORT INFORMATION
  Report Type: Spontaneous
  Country: US (occurrence: None)
  Receive Date: 20141215
  Receipt Date: 20141215
  Transmission Date: 20150529
  Serious: No
  Sender: FDA-Public Use
  Company Number: None

PATIENT
  Sex: Female
  Weight: 75.75 kg

DRUGS (6)
  1. AMLODIPINE [Concomitant]
     Active Substance: AMLODIPINE BESYLATE
  2. FENOFIBRATE. [Concomitant]
     Active Substance: FENOFIBRATE
  3. METOPROLOL SUCCINATE ER [Suspect]
     Active Substance: METOPROLOL SUCCINATE
     Indication: HYPERTENSION
     Dosage: 1 PILL A DAY
     Route: 048
     Dates: start: 2004, end: 201409
  4. KRILL OIL [Concomitant]
     Active Substance: DIETARY SUPPLEMENT
  5. LOSARTAN [Concomitant]
     Active Substance: LOSARTAN
  6. CENTRUM SILVER VITAMINS [Concomitant]

REACTIONS (1)
  - Alopecia [None]
